FAERS Safety Report 14129109 (Version 2)
Quarter: 2017Q4

REPORT INFORMATION
  Report Type: Spontaneous
  Country: US (occurrence: US)
  Receive Date: 20171026
  Receipt Date: 20171124
  Transmission Date: 20180321
  Serious: No
  Sender: FDA-Public Use
  Company Number: US-GLAXOSMITHKLINE-US2017163996

PATIENT
  Age: 74 Year
  Sex: Female

DRUGS (1)
  1. NICORETTE [Suspect]
     Active Substance: NICOTINE
     Indication: SMOKING CESSATION THERAPY
     Dosage: 2 MG, UNK, USED ONE OF THE 2MG LOZENGES
     Dates: start: 201708

REACTIONS (3)
  - Throat irritation [Unknown]
  - Epigastric discomfort [Unknown]
  - Oral discomfort [Unknown]
